FAERS Safety Report 8443032-9 (Version None)
Quarter: 2012Q2

REPORT INFORMATION
  Report Type: 
  Country: None (occurrence: None)
  Receive Date: 20120615
  Receipt Date: 20120612
  Transmission Date: 20120825
  Serious: Yes (Hospitalization)
  Sender: FDA-Public Use
  Company Number: PHHY2012CH050681

PATIENT

DRUGS (11)
  1. KEPPRA [Suspect]
     Indication: TONIC CLONIC MOVEMENTS
     Dosage: 1000 MG, BID
     Route: 048
     Dates: start: 20120425, end: 20120426
  2. ENOXAPARIN SODIUM [Concomitant]
     Dosage: 40 MG, QD
     Route: 058
     Dates: start: 20120418
  3. MOVIPREP [Concomitant]
     Dosage: 1 DF, QD
     Route: 048
  4. METOPROLOL TARTRATE [Concomitant]
     Dosage: 25 MG, BID
     Route: 048
  5. REMERON [Suspect]
     Dosage: 15 MG, DAILY
     Route: 048
     Dates: end: 20120425
  6. AMOXICILLIN AND CLAVULANATE POTASSIUM [Suspect]
     Indication: BRONCHOPNEUMONIA
     Dosage: 1.2 G, TID
     Route: 041
     Dates: start: 20120420, end: 20120425
  7. ACETAMINOPHEN [Concomitant]
     Dosage: 1 G, TID
     Route: 048
  8. LASIX [Concomitant]
     Dosage: 20 MG, BID
     Route: 042
     Dates: start: 20120420, end: 20120423
  9. CALCIMAGON-D3 [Concomitant]
     Dosage: 500 MG, QD
     Route: 048
  10. SINTROM [Concomitant]
     Dosage: 1 M, QD
     Route: 048
  11. TORSEMIDE [Concomitant]
     Dosage: 5 MG, QD
     Route: 048
     Dates: start: 20120418, end: 20120423

REACTIONS (3)
  - TONIC CLONIC MOVEMENTS [None]
  - GRAND MAL CONVULSION [None]
  - SOMNOLENCE [None]
